FAERS Safety Report 24780574 (Version 1)
Quarter: 2024Q4

REPORT INFORMATION
  Report Type: Other
  Country: CA (occurrence: CA)
  Receive Date: 20241227
  Receipt Date: 20241227
  Transmission Date: 20250114
  Serious: Yes (Other)
  Sender: APOTEX
  Company Number: CA-APOTEX-2024AP020059

PATIENT
  Age: 60 Year
  Sex: Female

DRUGS (2)
  1. DEXAMETHASONE [Suspect]
     Active Substance: DEXAMETHASONE
     Indication: Breast cancer metastatic
     Dosage: UNK
     Route: 065
  2. KISQALI [Suspect]
     Active Substance: RIBOCICLIB
     Indication: Breast cancer metastatic
     Dosage: 600 MILLIGRAM, QD
     Route: 048

REACTIONS (9)
  - Abnormal behaviour [Unknown]
  - Crying [Unknown]
  - Fatigue [Unknown]
  - Frustration tolerance decreased [Unknown]
  - Pain in extremity [Unknown]
  - Somnolence [Unknown]
  - Thrombosis [Unknown]
  - Headache [Unknown]
  - Depression [Unknown]
